FAERS Safety Report 6543554-1 (Version None)
Quarter: 2010Q1

REPORT INFORMATION
  Report Type: 
  Country: None (occurrence: None)
  Receive Date: 20100115
  Receipt Date: 20100108
  Transmission Date: 20100710
  Serious: Yes (Other)
  Sender: FDA-Public Use
  Company Number: 2010SP002304

PATIENT
  Sex: Male

DRUGS (1)
  1. REMERON [Suspect]
     Indication: DEPRESSION
     Dosage: 15 MG; QD; PO
     Route: 048
     Dates: start: 20091101, end: 20091201

REACTIONS (3)
  - ASTHENIA [None]
  - BLOOD POTASSIUM DECREASED [None]
  - RHABDOMYOLYSIS [None]
